FAERS Safety Report 5262695-2 (Version None)
Quarter: 2007Q1

REPORT INFORMATION
  Report Type: 
  Country: None (occurrence: None)
  Receive Date: 20070312
  Receipt Date: 20070302
  Transmission Date: 20070707
  Serious: Yes (Hospitalization)
  Sender: FDA-Public Use
  Company Number: JP-MERCK-0703USA01041

PATIENT
  Age: 31 Year
  Sex: Male

DRUGS (1)
  1. PROPECIA [Suspect]
     Indication: MALE PATTERN BALDNESS
     Route: 048
     Dates: start: 20070101, end: 20070101

REACTIONS (4)
  - DIARRHOEA [None]
  - HIP FRACTURE [None]
  - JOINT DISLOCATION [None]
  - LIVER FUNCTION TEST ABNORMAL [None]
